FAERS Safety Report 15926415 (Version 2)
Quarter: 2019Q3

REPORT INFORMATION
  Report Type: Spontaneous
  Country: US (occurrence: US)
  Receive Date: 20190206
  Receipt Date: 20190826
  Transmission Date: 20191004
  Serious: No
  Sender: FDA-Public Use
  Company Number: US-MYLANLABS-2019M1006042

PATIENT
  Sex: Female
  Weight: 63 kg

DRUGS (2)
  1. MIDODRINE MYLAN [Suspect]
     Active Substance: MIDODRINE
     Dosage: 5 MILLIGRAM, Q3H
     Route: 048
     Dates: start: 2015
  2. MIDODRINE MYLAN [Suspect]
     Active Substance: MIDODRINE
     Indication: POSTURAL ORTHOSTATIC TACHYCARDIA SYNDROME
     Dosage: 5 MILLIGRAM, Q3H
     Route: 048
     Dates: start: 2012

REACTIONS (2)
  - Headache [Recovered/Resolved]
  - Therapeutic product effect decreased [Unknown]

NARRATIVE: CASE EVENT DATE: 2012
